FAERS Safety Report 4922176-X (Version None)
Quarter: 2006Q1

REPORT INFORMATION
  Report Type: 
  Country: None (occurrence: None)
  Receive Date: 20060224
  Receipt Date: 20050218
  Transmission Date: 20060701
  Serious: Yes (Hospitalization)
  Sender: FDA-Public Use
  Company Number: US-MERCK-0502USA02847

PATIENT
  Age: 45 Year
  Sex: Female
  Weight: 50 kg

DRUGS (9)
  1. VIOXX [Suspect]
     Indication: OSTEOARTHRITIS
     Route: 048
     Dates: start: 19991208, end: 20021203
  2. ALBUTEROL [Concomitant]
     Route: 065
  3. FLOVENT [Concomitant]
     Route: 065
  4. SINGULAIR [Concomitant]
     Route: 048
  5. LEVOTHYROXINE SODIUM [Concomitant]
     Route: 065
  6. DILANTIN [Concomitant]
     Route: 065
  7. ZYRTEC [Concomitant]
     Route: 065
  8. TYLENOL W/ CODEINE [Concomitant]
     Route: 065
  9. PREVACID [Concomitant]
     Route: 065

REACTIONS (2)
  - CEREBROVASCULAR ACCIDENT [None]
  - GASTROOESOPHAGEAL REFLUX DISEASE [None]
